FAERS Safety Report 10409182 (Version 1)
Quarter: 2014Q1

REPORT INFORMATION
  Report Type: Spontaneous
  Country: US (occurrence: None)
  Receive Date: 20140131
  Receipt Date: 20140131
  Transmission Date: 20141002
  Serious: Yes (Other)
  Sender: FDA-Public Use
  Company Number: 090840U

PATIENT
  Age: 42 Year
  Sex: Male
  Weight: 69.4 kg

DRUGS (1)
  1. LEVETIRACETAM [Suspect]
     Indication: CONVULSION
     Dosage: (250MG BID, FOR ONE YEAR OR MORE)

REACTIONS (3)
  - Grand mal convulsion [None]
  - Rash generalised [None]
  - Tooth extraction [None]
